FAERS Safety Report 8288944-4 (Version None)
Quarter: 2012Q2

REPORT INFORMATION
  Report Type: 
  Country: None (occurrence: None)
  Receive Date: 20120412
  Receipt Date: 20120331
  Transmission Date: 20120825
  Serious: Yes (Other)
  Sender: FDA-Public Use
  Company Number: AUR-APL-2012-01687

PATIENT
  Age: 5 Year
  Sex: Male

DRUGS (4)
  1. TRETINOIN [Suspect]
     Indication: ACUTE MYELOID LEUKAEMIA
  2. LAMIVUDINE [Suspect]
     Indication: ANTIRETROVIRAL THERAPY
  3. EFAVIRENZ [Suspect]
     Indication: ANTIRETROVIRAL THERAPY
  4. STAVUDINE [Suspect]
     Indication: ANTIRETROVIRAL THERAPY

REACTIONS (5)
  - HYPERSENSITIVITY [None]
  - PARAPLEGIA [None]
  - DRUG INTERACTION [None]
  - BACK PAIN [None]
  - OPPORTUNISTIC INFECTION [None]
